FAERS Safety Report 4442988-9 (Version None)
Quarter: 2004Q3

REPORT INFORMATION
  Report Type: 
  Country: None (occurrence: None)
  Receive Date: 20040728
  Receipt Date: 20040514
  Transmission Date: 20050211
  Serious: No
  Sender: FDA-Public Use
  Company Number: USA040567694

PATIENT
  Sex: Female

DRUGS (2)
  1. STRATTERA [Suspect]
     Dosage: 105 MG DAY
     Dates: start: 20040301
  2. ADDERALL 10 [Concomitant]

REACTIONS (2)
  - PRESCRIBED OVERDOSE [None]
  - STOMACH DISCOMFORT [None]
